FAERS Safety Report 6269549-3 (Version None)
Quarter: 2009Q3

REPORT INFORMATION
  Report Type: 
  Country: None (occurrence: None)
  Receive Date: 20090715
  Receipt Date: 20090703
  Transmission Date: 20100115
  Serious: Yes (Death, Life-Threatening)
  Sender: FDA-Public Use
  Company Number: PL-GENENTECH-279362

PATIENT
  Sex: Male
  Weight: 120 kg

DRUGS (6)
  1. TENECTEPLASE [Suspect]
     Indication: PULMONARY EMBOLISM
     Dosage: 50 MG, SINGLE
     Route: 040
     Dates: start: 20081209, end: 20081209
  2. FONDAPARINUX SODIUM [Suspect]
     Indication: PULMONARY EMBOLISM
     Dosage: 10 MG, SINGLE
     Route: 058
     Dates: start: 20081209, end: 20081209
  3. ZINACEF [Concomitant]
     Indication: DRUG USE FOR UNKNOWN INDICATION
     Dosage: 750 MG, X1
     Route: 042
     Dates: start: 20081209, end: 20081209
  4. METOPROLOL TARTRATE [Concomitant]
     Indication: DRUG USE FOR UNKNOWN INDICATION
     Dosage: 12.5 MG, X1
     Route: 048
     Dates: start: 20081209, end: 20081209
  5. ADRENALINE [Concomitant]
     Indication: DRUG USE FOR UNKNOWN INDICATION
     Dosage: 12 MG, CONTINUOUS
     Route: 042
     Dates: start: 20081209, end: 20081210
  6. ATROPINE [Concomitant]
     Indication: DRUG USE FOR UNKNOWN INDICATION
     Dosage: 3 MG, X1
     Route: 042
     Dates: start: 20081209, end: 20081209

REACTIONS (2)
  - CIRCULATORY COLLAPSE [None]
  - MUCOSAL HAEMORRHAGE [None]
